FAERS Safety Report 12627667 (Version 2)
Quarter: 2016Q3

REPORT INFORMATION
  Report Type: Spontaneous
  Country: BR (occurrence: BR)
  Receive Date: 20160805
  Receipt Date: 20160913
  Transmission Date: 20161109
  Serious: Yes (Other)
  Sender: FDA-Public Use
  Company Number: PHHY2016BR105430

PATIENT
  Age: 33 Year
  Sex: Male

DRUGS (1)
  1. CIPROFLOXACIN. [Suspect]
     Active Substance: CIPROFLOXACIN
     Indication: SURGERY
     Dosage: 1 DF, Q12H
     Route: 048

REACTIONS (2)
  - Drug ineffective [Unknown]
  - Urinary tract infection [Recovered/Resolved]
